FAERS Safety Report 7340969-9 (Version None)
Quarter: 2011Q1

REPORT INFORMATION
  Report Type: 
  Country: None (occurrence: None)
  Receive Date: 20110309
  Receipt Date: 20110224
  Transmission Date: 20110831
  Serious: Yes (Death, Hospitalization, Other)
  Sender: FDA-Public Use
  Company Number: IN-ELI_LILLY_AND_COMPANY-IN201102006824

PATIENT
  Age: 50 Year
  Sex: Female

DRUGS (2)
  1. XIGRIS [Suspect]
     Indication: SEPTIC SHOCK
     Dosage: UNK, UNKNOWN
     Route: 065
     Dates: start: 20110222, end: 20110225
  2. ANTIBIOTICS [Concomitant]
     Indication: SEPTIC SHOCK
     Dosage: UNK, UNKNOWN
     Route: 065

REACTIONS (6)
  - PLATELET COUNT DECREASED [None]
  - MOUTH HAEMORRHAGE [None]
  - MULTI-ORGAN FAILURE [None]
  - GENERAL PHYSICAL HEALTH DETERIORATION [None]
  - SEPTIC SHOCK [None]
  - HYPOTENSION [None]
